FAERS Safety Report 21681518 (Version 2)
Quarter: 2024Q4

REPORT INFORMATION
  Report Type: Spontaneous
  Country: US (occurrence: US)
  Receive Date: 20221205
  Receipt Date: 20241121
  Transmission Date: 20250114
  Serious: No
  Sender: KYOWA
  Company Number: US-KYOWAKIRIN-2022BKK018689

PATIENT

DRUGS (2)
  1. CRYSVITA [Suspect]
     Active Substance: BUROSUMAB-TWZA
     Indication: Hereditary hypophosphataemic rickets
     Dosage: 30 MG, 1X/2 WEEKS
     Route: 058
     Dates: start: 2021
  2. CRYSVITA [Suspect]
     Active Substance: BUROSUMAB-TWZA
     Dosage: 30 MG, 1X/2 WEEKS
     Route: 058
     Dates: start: 2020

REACTIONS (2)
  - Herpes simplex [Unknown]
  - Pyrexia [Unknown]

NARRATIVE: CASE EVENT DATE: 20241101
